FAERS Safety Report 9836052 (Version 3)
Quarter: 2014Q1

REPORT INFORMATION
  Report Type: Spontaneous
  Country: US (occurrence: US)
  Receive Date: 20140122
  Receipt Date: 20140205
  Transmission Date: 20141002
  Serious: Yes (Hospitalization)
  Sender: FDA-Public Use
  Company Number: US-ROCHE-1337029

PATIENT
  Sex: Female
  Weight: 118.9 kg

DRUGS (2)
  1. XOLAIR [Suspect]
     Indication: ASTHMA
     Route: 058
     Dates: start: 20131218, end: 20131231
  2. XOLAIR [Suspect]
     Indication: URTICARIA

REACTIONS (12)
  - Renal haemorrhage [Recovering/Resolving]
  - Blood urine present [Recovering/Resolving]
  - Dyspnoea [Unknown]
  - Eye pain [Unknown]
  - Corneal abrasion [Unknown]
  - Dyspnoea [Not Recovered/Not Resolved]
  - Cough [Unknown]
  - Back pain [Unknown]
  - Fatigue [Not Recovered/Not Resolved]
  - Kidney infection [Unknown]
  - C-reactive protein increased [Unknown]
  - Red blood cell sedimentation rate increased [Unknown]
